FAERS Safety Report 15275277 (Version 2)
Quarter: 2020Q3

REPORT INFORMATION
  Report Type: Spontaneous
  Country: DK (occurrence: DK)
  Receive Date: 20180814
  Receipt Date: 20200702
  Transmission Date: 20201102
  Serious: No
  Sender: FDA-Public Use
  Company Number: DK-VIIV HEALTHCARE LIMITED-DK2018144036

PATIENT
  Age: 31 Year
  Sex: Male

DRUGS (2)
  1. TRIUMEQ [Suspect]
     Active Substance: ABACAVIR SULFATE\DOLUTEGRAVIR SODIUM\LAMIVUDINE
     Indication: HIV INFECTION
     Dosage: 1 DF, QD(STYRKE: 50+600+300 MG)
     Route: 048
     Dates: start: 20150918, end: 20160329
  2. TRADOLAN [Concomitant]
     Active Substance: TRAMADOL
     Indication: PAIN
     Dosage: 100 MG, QD (STYRKE: 50 MG.)
     Route: 048
     Dates: start: 20150115, end: 20160927

REACTIONS (4)
  - Mental disorder [Recovered/Resolved]
  - Initial insomnia [Recovered/Resolved]
  - Depressed mood [Recovered/Resolved]
  - Night sweats [Recovered/Resolved]

NARRATIVE: CASE EVENT DATE: 201603
